FAERS Safety Report 9352703 (Version 1)
Quarter: 2013Q2

REPORT INFORMATION
  Report Type: Spontaneous
  Country: FR (occurrence: FR)
  Receive Date: 20130618
  Receipt Date: 20130618
  Transmission Date: 20140414
  Serious: Yes (Hospitalization)
  Sender: FDA-Public Use
  Company Number: FR-ASTRAZENECA-2013SE42324

PATIENT
  Age: 19837 Day
  Sex: Female

DRUGS (8)
  1. INEXIUM [Suspect]
     Route: 048
     Dates: start: 20130315
  2. CELLCEPT [Suspect]
     Indication: PROPHYLAXIS AGAINST TRANSPLANT REJECTION
     Route: 048
     Dates: start: 20130224
  3. PROGRAF [Suspect]
     Indication: PROPHYLAXIS AGAINST TRANSPLANT REJECTION
     Route: 048
     Dates: start: 20130224
  4. PENTACARINAT [Suspect]
     Route: 048
     Dates: start: 20130320
  5. ROVALCYTE [Suspect]
     Route: 048
     Dates: start: 20130315
  6. UVEDOSE [Concomitant]
  7. TIORFAN [Concomitant]
     Dates: start: 20130320
  8. SMECTA [Concomitant]
     Dates: start: 20130320

REACTIONS (2)
  - Renal failure acute [Recovered/Resolved]
  - Diarrhoea [Recovered/Resolved]
